FAERS Safety Report 4716298-6 (Version None)
Quarter: 2005Q3

REPORT INFORMATION
  Report Type: 
  Country: None (occurrence: None)
  Receive Date: 20050711
  Receipt Date: 20040826
  Transmission Date: 20060218
  Serious: Yes (Hospitalization)
  Sender: FDA-Public Use
  Company Number: 378690

PATIENT
  Age: 10 Year
  Sex: Female

DRUGS (3)
  1. MYCOPHENOLATE MOFETIL (MYCOPHENOLATE MOFETIL) [Suspect]
     Indication: PULMONARY HAEMOSIDEROSIS
     Dosage: 250 MG 2 PER DAY
  2. PREDNISONE [Suspect]
     Indication: PULMONARY HAEMOSIDEROSIS
     Dosage: 2 MG/KG 1 PER DAY ORAL
     Route: 048
  3. METHYLPREDNISOLONE [Suspect]
     Indication: PULMONARY HAEMOSIDEROSIS
     Dosage: INTRAVENOUS
     Route: 042

REACTIONS (1)
  - PNEUMONIA LEGIONELLA [None]
